FAERS Safety Report 13120782 (Version 1)
Quarter: 2017Q1

REPORT INFORMATION
  Report Type: Report from Study
  Country: US (occurrence: US)
  Receive Date: 20170117
  Receipt Date: 20170117
  Transmission Date: 20170428
  Serious: Yes (Hospitalization)
  Sender: FDA-Public Use
  Company Number: US-ROCHE-1879870

PATIENT
  Age: 83 Year
  Sex: Female
  Weight: 75.82 kg

DRUGS (3)
  1. BENAZEPRIL [Concomitant]
     Active Substance: BENAZEPRIL HYDROCHLORIDE
     Indication: BLOOD PRESSURE MEASUREMENT
     Route: 048
  2. METOPROLOL. [Concomitant]
     Active Substance: METOPROLOL
     Indication: BLOOD PRESSURE MEASUREMENT
     Route: 048
  3. LUCENTIS [Suspect]
     Active Substance: RANIBIZUMAB
     Indication: MACULAR DEGENERATION
     Route: 050

REACTIONS (3)
  - Hypertension [Recovered/Resolved]
  - Pneumonia [Recovered/Resolved]
  - Pulmonary mass [Recovered/Resolved]

NARRATIVE: CASE EVENT DATE: 201609
